FAERS Safety Report 10244758 (Version 3)
Quarter: 2014Q3

REPORT INFORMATION
  Report Type: Spontaneous
  Country: US (occurrence: US)
  Receive Date: 20140618
  Receipt Date: 20140910
  Transmission Date: 20150326
  Serious: Yes (Other)
  Sender: FDA-Public Use
  Company Number: US-PFIZER INC-2014164468

PATIENT
  Age: 76 Year
  Sex: Male
  Weight: 127 kg

DRUGS (2)
  1. NEURONTIN [Suspect]
     Active Substance: GABAPENTIN
     Indication: PROCEDURAL PAIN
     Dosage: UNK, 3X/DAY
     Route: 048
  2. METFORMIN [Concomitant]
     Active Substance: METFORMIN HYDROCHLORIDE
     Indication: TYPE 2 DIABETES MELLITUS
     Dosage: 1000 MG, 2X/DAY

REACTIONS (6)
  - Limb discomfort [Unknown]
  - Insomnia [Unknown]
  - Weight increased [Unknown]
  - Pain [Unknown]
  - Hypokinesia [Unknown]
  - Diabetic neuropathy [Unknown]
